FAERS Safety Report 23871680 (Version 1)
Quarter: 2024Q2

REPORT INFORMATION
  Report Type: Report from Study
  Country: US (occurrence: US)
  Receive Date: 20240519
  Receipt Date: 20240519
  Transmission Date: 20240716
  Serious: Yes (Other)
  Sender: FDA-Public Use
  Company Number: US-ABBVIE-5761494

PATIENT
  Age: 67 Year
  Sex: Female

DRUGS (1)
  1. RINVOQ [Suspect]
     Active Substance: UPADACITINIB
     Indication: Rheumatoid arthritis
     Route: 048
     Dates: start: 20230701

REACTIONS (6)
  - Knee operation [Unknown]
  - Vertigo [Recovered/Resolved]
  - Insomnia [Recovered/Resolved]
  - Duodenogastric reflux [Not Recovered/Not Resolved]
  - Weight loss poor [Not Recovered/Not Resolved]
  - Food allergy [Recovered/Resolved]

NARRATIVE: CASE EVENT DATE: 20230701
